FAERS Safety Report 18419590 (Version 1)
Quarter: 2020Q4

REPORT INFORMATION
  Report Type: Report from Study
  Country: ES (occurrence: ES)
  Receive Date: 20201023
  Receipt Date: 20201023
  Transmission Date: 20210114
  Serious: Yes (Other)
  Sender: FDA-Public Use
  Company Number: ES-MYLANLABS-2020M1088940

PATIENT
  Sex: Male

DRUGS (2)
  1. PREDNISONE. [Suspect]
     Active Substance: PREDNISONE
     Indication: INTERSTITIAL LUNG DISEASE
  2. PREDNISONE. [Suspect]
     Active Substance: PREDNISONE
     Indication: SYSTEMIC SCLERODERMA
     Dosage: LOW-MEDIUM DOSE PREDNISONE
     Route: 065

REACTIONS (1)
  - Drug ineffective [Unknown]
